FAERS Safety Report 9731156 (Version 2)
Quarter: 2014Q1

REPORT INFORMATION
  Report Type: Spontaneous
  Country: US (occurrence: US)
  Receive Date: 20131203
  Receipt Date: 20140324
  Transmission Date: 20141002
  Serious: Yes (Other)
  Sender: FDA-Public Use
  Company Number: US-SA-2013SA125071

PATIENT
  Age: 89 Year
  Sex: Male
  Weight: 78.91 kg

DRUGS (6)
  1. PLAVIX [Suspect]
     Indication: STENT PLACEMENT
     Route: 048
     Dates: start: 20130202, end: 20130501
  2. ELIQUIS [Suspect]
     Indication: CORONARY ARTERIAL STENT INSERTION
     Route: 048
     Dates: start: 20130702, end: 20130810
  3. COUMADIN [Suspect]
     Route: 065
  4. ASPIRIN [Suspect]
     Route: 065
  5. ATENOLOL [Concomitant]
     Indication: BLOOD PRESSURE
     Route: 065
     Dates: start: 1988
  6. FINASTERIDE [Concomitant]
     Indication: PROSTATIC DISORDER
     Route: 065
     Dates: start: 20060220, end: 20130701

REACTIONS (3)
  - Nerve injury [Not Recovered/Not Resolved]
  - Hypoaesthesia [Not Recovered/Not Resolved]
  - Blood urine present [Unknown]
